FAERS Safety Report 13561820 (Version 2)
Quarter: 2017Q2

REPORT INFORMATION
  Report Type: Spontaneous
  Country: BR (occurrence: BR)
  Receive Date: 20170518
  Receipt Date: 20170524
  Transmission Date: 20170830
  Serious: Yes (Hospitalization, Other)
  Sender: FDA-Public Use
  Company Number: BR-ABBVIE-17P-020-1980219-00

PATIENT
  Age: 48 Year
  Sex: Female
  Weight: 80 kg

DRUGS (18)
  1. HYDROXYZINE HCL [Concomitant]
     Active Substance: HYDROXYZINE HYDROCHLORIDE
     Indication: ALLERGY PROPHYLAXIS
     Dosage: DAILY DOSE 1-3 TABLETS AS NEEDED
     Route: 048
  2. BUPROPION HYDROCHLORIDE. [Concomitant]
     Active Substance: BUPROPION HYDROCHLORIDE
     Indication: SKIN DISCOLOURATION
     Dosage: 1 TBL MORNING AND NIGHT
     Route: 048
  3. SYNTHROID [Suspect]
     Active Substance: LEVOTHYROXINE SODIUM
     Indication: HYPOTHYROIDISM
     Dosage: 1 TBL MORNING (FASTING)
     Route: 048
  4. HYDROXYCHLOROQUINE SULFATE. [Concomitant]
     Active Substance: HYDROXYCHLOROQUINE SULFATE
     Indication: IMMUNE SYSTEM DISORDER
     Dosage: 1 TBL BEFORE LUNCH
     Route: 048
  5. PAROXETINE ACETATE [Concomitant]
     Indication: LUPUS-LIKE SYNDROME
     Dosage: 1 TBL MORNING AND NIGHT
     Route: 048
  6. RIVOTRIL [Concomitant]
     Active Substance: CLONAZEPAM
     Indication: AGITATION
     Dosage: 3 DROPS 9AM, 3 DROPS 3PM, 13 DROPS  10PM
     Route: 048
  7. CLEANKINOL [Concomitant]
     Indication: SKIN DISCOLOURATION
  8. NUTRAPLUS [Concomitant]
     Indication: URTICARIA
     Dosage: AFTER SHOWER
     Route: 061
  9. PREDSIM [Concomitant]
     Active Substance: PREDNISOLONE
     Indication: RHEUMATIC DISORDER
     Dosage: UNIT DOSE:15MG MORNING/10MG AT NIGHT
     Route: 048
  10. THALIDOMIDE CELGEN [Concomitant]
     Indication: RHEUMATIC DISORDER
  11. DAFORIN [Concomitant]
     Active Substance: FLUOXETINE HYDROCHLORIDE
     Indication: ANTIDEPRESSANT THERAPY
     Dosage: 1 TBL MORNING AND NIGHT
     Route: 048
  12. PARACETAMOL A [Concomitant]
     Active Substance: ACETAMINOPHEN
     Indication: PAIN
     Dosage: AS NEEDED, UP TO 3 TIMES PER DAY
     Route: 048
  13. THALIDOMIDE CELGEN [Concomitant]
     Indication: NAUSEA
     Dosage: 100MG AT NIGHT
     Route: 048
  14. THALIDOMIDE CELGEN [Concomitant]
     Indication: INJURY
  15. HYDROXYCHLOROQUINE SULFATE. [Concomitant]
     Active Substance: HYDROXYCHLOROQUINE SULFATE
     Indication: MALARIA PROPHYLAXIS
  16. NUTRAPLUS [Concomitant]
     Indication: DRY SKIN
  17. SYNTHROID [Suspect]
     Active Substance: LEVOTHYROXINE SODIUM
     Route: 048
  18. HYDROXYZINE HCL [Concomitant]
     Active Substance: HYDROXYZINE HYDROCHLORIDE
     Indication: SKIN IRRITATION

REACTIONS (27)
  - Blood thyroid stimulating hormone abnormal [Unknown]
  - Incorrect dose administered [Unknown]
  - Mutism [Not Recovered/Not Resolved]
  - Visual impairment [Not Recovered/Not Resolved]
  - Product quality issue [Unknown]
  - Thrombosis [Unknown]
  - Thyroxine abnormal [Unknown]
  - Abstains from alcohol [Not Recovered/Not Resolved]
  - Dizziness [Unknown]
  - Dysphonia [Not Recovered/Not Resolved]
  - Pneumonia [Unknown]
  - Weight increased [Unknown]
  - Peripheral swelling [Not Recovered/Not Resolved]
  - Loss of consciousness [Recovered/Resolved]
  - Sjogren^s syndrome [Not Recovered/Not Resolved]
  - Memory impairment [Unknown]
  - Eating disorder [Not Recovered/Not Resolved]
  - Joint injury [Unknown]
  - Bronchitis [Unknown]
  - Vasculitis [Unknown]
  - Tooth disorder [Unknown]
  - Sleep disorder [Unknown]
  - Restlessness [Not Recovered/Not Resolved]
  - Immune system disorder [Unknown]
  - Restlessness [Unknown]
  - Fall [Unknown]
  - Palpitations [Not Recovered/Not Resolved]

NARRATIVE: CASE EVENT DATE: 201611
